FAERS Safety Report 7676433-7 (Version None)
Quarter: 2011Q3

REPORT INFORMATION
  Report Type: 
  Country: None (occurrence: None)
  Receive Date: 20110811
  Receipt Date: 20080827
  Transmission Date: 20111222
  Serious: Yes (Other)
  Sender: FDA-Public Use
  Company Number: US-BAYER-200827479NA

PATIENT
  Sex: Female
  Weight: 78.912 kg

DRUGS (31)
  1. MAGNEVIST [Suspect]
     Indication: ARTERIOGRAM
  2. COUMADIN [Concomitant]
  3. HYDRALAZINE HCL [Concomitant]
  4. OPTIMARK [Suspect]
     Indication: NUCLEAR MAGNETIC RESONANCE IMAGING
  5. PROHANCE [Suspect]
     Indication: ARTERIOGRAM
  6. PROCARDIA XL [Concomitant]
  7. LABETALOL HCL [Concomitant]
  8. RENAGEL [Concomitant]
  9. PREDNISONE [Concomitant]
  10. PERCOCET [Concomitant]
  11. OMNISCAN [Suspect]
     Indication: NUCLEAR MAGNETIC RESONANCE IMAGING
     Dosage: UNK UNK, ONCE
     Route: 042
     Dates: start: 20061005, end: 20061005
  12. PROHANCE [Suspect]
     Indication: NUCLEAR MAGNETIC RESONANCE IMAGING
  13. LEVAQUIN [Concomitant]
  14. DILANTIN [Concomitant]
  15. OMNISCAN [Suspect]
     Indication: ANGIOGRAM
  16. LOPRESSOR [Concomitant]
  17. OPTIMARK [Suspect]
     Indication: ARTERIOGRAM
  18. GADOLINIUM IN UNSPECIFIED DRUG [Suspect]
     Indication: ANGIOGRAM
     Dosage: UNK
     Route: 042
     Dates: start: 20061005, end: 20061005
  19. KEPPRA [Concomitant]
  20. ATENOLOL [Concomitant]
  21. MAGNEVIST [Suspect]
     Indication: NUCLEAR MAGNETIC RESONANCE IMAGING
  22. OMNISCAN [Suspect]
  23. MULTIHANCE [Suspect]
     Indication: ARTERIOGRAM
  24. CLONIDINE [Concomitant]
  25. SENSIPAR [Concomitant]
  26. OMNISCAN [Suspect]
     Indication: ARTERIOGRAM
     Dosage: 20 ML, UNK
     Route: 042
     Dates: start: 20061204, end: 20061204
  27. MULTIHANCE [Suspect]
     Indication: NUCLEAR MAGNETIC RESONANCE IMAGING
  28. GADOLINIUM IN UNSPECIFIED DRUG [Suspect]
     Indication: NUCLEAR MAGNETIC RESONANCE IMAGING BRAIN
     Dosage: UNK UNK, ONCE
     Dates: start: 20050508, end: 20050508
  29. METOPROLOL TARTRATE [Concomitant]
  30. WARFARIN SODIUM [Concomitant]
  31. ACETAMINOPHEN [Concomitant]

REACTIONS (16)
  - PAIN [None]
  - SCAR [None]
  - WHEELCHAIR USER [None]
  - EXFOLIATIVE RASH [None]
  - ANXIETY [None]
  - NEPHROGENIC SYSTEMIC FIBROSIS [None]
  - INJURY [None]
  - JOINT CONTRACTURE [None]
  - GENERAL PHYSICAL HEALTH DETERIORATION [None]
  - ANHEDONIA [None]
  - RASH MACULAR [None]
  - PAIN OF SKIN [None]
  - OEDEMA PERIPHERAL [None]
  - JOINT STIFFNESS [None]
  - SKIN INDURATION [None]
  - EMOTIONAL DISTRESS [None]
